FAERS Safety Report 5120522-8 (Version None)
Quarter: 2006Q4

REPORT INFORMATION
  Report Type: 
  Country: None (occurrence: None)
  Receive Date: 20061002
  Receipt Date: 20060918
  Transmission Date: 20070319
  Serious: Yes (Death, Other)
  Sender: FDA-Public Use
  Company Number: MC200600450

PATIENT
  Age: 37 Year
  Sex: Male

DRUGS (5)
  1. ANGIOMAX [Suspect]
     Dosage: 63.75 MG, BOLUS, IV BOLUS
     Route: 040
     Dates: start: 20060326, end: 20060326
  2. LOVENOX [Concomitant]
  3. GARDENAL AVENTIS (PHENOBARBITAL) [Concomitant]
  4. EPINEPHRINE [Concomitant]
  5. AUGMENTIN '125' [Concomitant]

REACTIONS (3)
  - CEREBRAL ISCHAEMIA [None]
  - CONVULSION [None]
  - RESPIRATORY DISTRESS [None]
